FAERS Safety Report 4603257-7 (Version None)
Quarter: 2005Q1

REPORT INFORMATION
  Report Type: 
  Country: None (occurrence: None)
  Receive Date: 20050308
  Receipt Date: 20050203
  Transmission Date: 20050727
  Serious: No
  Sender: FDA-Public Use
  Company Number: 200410657BFR

PATIENT
  Age: 69 Year
  Sex: Male
  Weight: 70 kg

DRUGS (2)
  1. MOXIFLOXACIN HYDROCHLORIDE [Suspect]
     Indication: BRONCHIAL INFECTION
     Dosage: 400 MG, TOTAL DAILY, ORAL
     Route: 048
     Dates: start: 20041222, end: 20041231
  2. MOXIFLOXACIN HYDROCHLORIDE [Suspect]
     Indication: SUPERINFECTION
     Dosage: 400 MG, TOTAL DAILY, ORAL
     Route: 048
     Dates: start: 20041222, end: 20041231

REACTIONS (5)
  - ABNORMAL SENSATION IN EYE [None]
  - DIPLOPIA [None]
  - VISUAL DISTURBANCE [None]
  - VITREOUS DETACHMENT [None]
  - VITREOUS FLOATERS [None]
